FAERS Safety Report 4492565-9 (Version None)
Quarter: 2004Q4

REPORT INFORMATION
  Report Type: 
  Country: None (occurrence: None)
  Receive Date: 20041104
  Receipt Date: 20041026
  Transmission Date: 20050328
  Serious: Yes (Hospitalization, Other)
  Sender: FDA-Public Use
  Company Number: ABBOTT-04P-090-0278948-00

PATIENT
  Sex: Female
  Weight: 176.9 kg

DRUGS (1)
  1. MERIDIA [Suspect]
     Indication: OBESITY
     Dates: start: 20040511, end: 20041001

REACTIONS (2)
  - CEREBRAL HAEMORRHAGE [None]
  - INTRACRANIAL ANEURYSM [None]
